FAERS Safety Report 12396365 (Version 1)
Quarter: 2016Q2

REPORT INFORMATION
  Report Type: Spontaneous
  Country: AU (occurrence: AU)
  Receive Date: 20160524
  Receipt Date: 20160524
  Transmission Date: 20160815
  Serious: Yes (Other)
  Sender: FDA-Public Use
  Company Number: AU-BAXTER-2016BAX026079

PATIENT
  Age: 69 Year
  Sex: Male

DRUGS (2)
  1. OXALICCORD [Suspect]
     Active Substance: OXALIPLATIN
     Indication: PRODUCT USED FOR UNKNOWN INDICATION
     Dosage: SIZE: 104MG/20.8ML
     Route: 065
     Dates: start: 20160428
  2. BAXTER 5% GLUCOSE 100ML INJECTION BP BAG AHB0087 AHB0094 [Suspect]
     Active Substance: DEXTROSE
     Indication: MEDICATION DILUTION
     Dosage: SIZE: 530ML
     Route: 065
     Dates: start: 20160428

REACTIONS (2)
  - Agitation [Unknown]
  - Neuropathy peripheral [Unknown]

NARRATIVE: CASE EVENT DATE: 20160428
